FAERS Safety Report 21893046 (Version 3)
Quarter: 2023Q1

REPORT INFORMATION
  Report Type: Report from Study
  Country: PT (occurrence: GB)
  Receive Date: 20230120
  Receipt Date: 20230221
  Transmission Date: 20230417
  Serious: Yes (Death, Life-Threatening, Hospitalization)
  Sender: FDA-Public Use
  Company Number: PT-SUNOVION-2022SUN003186AA

PATIENT

DRUGS (6)
  1. ESLICARBAZEPINE ACETATE [Suspect]
     Active Substance: ESLICARBAZEPINE ACETATE
     Indication: Seizure prophylaxis
     Dosage: 800 MG, QD
     Route: 048
     Dates: start: 20211103, end: 20211106
  2. LANSOPRAZOLE [Concomitant]
     Active Substance: LANSOPRAZOLE
     Indication: Gastrointestinal disorder prophylaxis
     Dosage: 30 MG, QD
     Route: 048
     Dates: start: 20211106, end: 20221123
  3. APIXABAN [Concomitant]
     Active Substance: APIXABAN
     Indication: Atrial tachycardia
     Dosage: 10 MG, BID
     Route: 048
     Dates: start: 20220126, end: 20221019
  4. FUROSEMIDE [Concomitant]
     Active Substance: FUROSEMIDE
     Indication: Hypervolaemia
     Dosage: 40 MG, QD
     Route: 048
     Dates: start: 20220417, end: 202210
  5. BISOPROLOL [Concomitant]
     Active Substance: BISOPROLOL
     Indication: Atrial fibrillation
     Dosage: 5 MG, QD
     Route: 048
     Dates: start: 20220426, end: 20221024
  6. DIGOXIN [Concomitant]
     Active Substance: DIGOXIN
     Indication: Atrial fibrillation
     Dosage: 125 ?G, QD
     Route: 048
     Dates: start: 20220417, end: 20221227

REACTIONS (5)
  - Procedural haemorrhage [Fatal]
  - Pancreatitis [Recovered/Resolved]
  - Sepsis [Not Recovered/Not Resolved]
  - Jugular vein thrombosis [Not Recovered/Not Resolved]
  - Multiple organ dysfunction syndrome [Not Recovered/Not Resolved]

NARRATIVE: CASE EVENT DATE: 20221025
